FAERS Safety Report 13421875 (Version 1)
Quarter: 2017Q2

REPORT INFORMATION
  Report Type: Spontaneous
  Country: US (occurrence: US)
  Receive Date: 20170410
  Receipt Date: 20170410
  Transmission Date: 20170830
  Serious: No
  Sender: FDA-Public Use
  Company Number: US-PFIZER INC-2017149061

PATIENT
  Age: 71 Year
  Sex: Female

DRUGS (2)
  1. MILNACIPRAN [Suspect]
     Active Substance: MILNACIPRAN
     Dosage: UNK
  2. VISTARIL [Suspect]
     Active Substance: HYDROXYZINE PAMOATE
     Dosage: UNK

REACTIONS (2)
  - Insomnia [Unknown]
  - Drug hypersensitivity [Unknown]
